FAERS Safety Report 19127094 (Version 1)
Quarter: 2021Q2

REPORT INFORMATION
  Report Type: Spontaneous
  Country: US (occurrence: US)
  Receive Date: 20210412
  Receipt Date: 20210412
  Transmission Date: 20210717
  Serious: Yes (Death)
  Sender: FDA-Public Use
  Company Number: None

PATIENT
  Sex: Female

DRUGS (19)
  1. METHOTREXATE. [Concomitant]
     Active Substance: METHOTREXATE
  2. ENBREL [Suspect]
     Active Substance: ETANERCEPT
     Indication: RHEUMATOID ARTHRITIS
     Dosage: 1 PEN Q7Q SQ
     Route: 058
     Dates: start: 20201103
  3. OXYCODONE AND ACETAMINOPHEN [Concomitant]
     Active Substance: ACETAMINOPHEN\OXYCODONE HYDROCHLORIDE
  4. DESVENLAFAX ER [Concomitant]
  5. OMEPRAZOLE. [Concomitant]
     Active Substance: OMEPRAZOLE
  6. PREGABALIN. [Concomitant]
     Active Substance: PREGABALIN
  7. VALACYCLOVIR [Concomitant]
     Active Substance: VALACYCLOVIR HYDROCHLORIDE
  8. ALLOPURINOL. [Concomitant]
     Active Substance: ALLOPURINOL
  9. PREDNISONE. [Concomitant]
     Active Substance: PREDNISONE
  10. TRULICITY [Concomitant]
     Active Substance: DULAGLUTIDE
  11. FARXIGA [Concomitant]
     Active Substance: DAPAGLIFLOZIN PROPANEDIOL
  12. HUMULIN R [Concomitant]
     Active Substance: INSULIN HUMAN
  13. HYDROXYCHLOR [Concomitant]
     Active Substance: HYDROXYCHLOROQUINE
  14. LOSARTAN POT [Concomitant]
     Active Substance: LOSARTAN POTASSIUM
  15. DROSPIRENONE ETHY EST [Concomitant]
  16. FOLIC ACID. [Concomitant]
     Active Substance: FOLIC ACID
  17. SPRAVATO [Suspect]
     Active Substance: ESKETAMINE
     Indication: SUICIDAL IDEATION
     Dosage: 84MG BIW INTRANASALLY
     Route: 045
     Dates: start: 20210309
  18. ETODOLAC. [Concomitant]
     Active Substance: ETODOLAC
  19. VICTOZA [Concomitant]
     Active Substance: LIRAGLUTIDE

REACTIONS (1)
  - Death [None]
